FAERS Safety Report 8114170-5 (Version None)
Quarter: 2012Q1

REPORT INFORMATION
  Report Type: 
  Country: None (occurrence: None)
  Receive Date: 20120205
  Receipt Date: 20120127
  Transmission Date: 20120608
  Serious: Yes (Death, Other)
  Sender: FDA-Public Use
  Company Number: PHHY2012GB007754

PATIENT
  Age: 29 Year
  Sex: Female

DRUGS (2)
  1. AMIODARONE HCL [Suspect]
     Route: 048
  2. AMIODARONE HCL [Suspect]
     Indication: PALPITATIONS
     Route: 042

REACTIONS (5)
  - BRUGADA SYNDROME [None]
  - MATERNAL EXPOSURE DURING PREGNANCY [None]
  - ELECTROCARDIOGRAM ST SEGMENT ELEVATION [None]
  - VENTRICULAR FIBRILLATION [None]
  - SHOCK [None]
